FAERS Safety Report 6420414-8 (Version None)
Quarter: 2009Q4

REPORT INFORMATION
  Report Type: 
  Country: None (occurrence: None)
  Receive Date: 20091029
  Receipt Date: 20090921
  Transmission Date: 20100525
  Serious: Yes (Congenital Anomaly)
  Sender: FDA-Public Use
  Company Number: US-GENENTECH-287617

PATIENT
  Sex: Male

DRUGS (2)
  1. TRASTUZUMAB [Suspect]
     Indication: BREAST CANCER
     Route: 064
  2. NYSTATIN [Concomitant]
     Indication: RASH
     Dosage: UNK
     Dates: start: 20090626

REACTIONS (1)
  - VENTRICULAR SEPTAL DEFECT [None]
